FAERS Safety Report 12378160 (Version 1)
Quarter: 2016Q2

REPORT INFORMATION
  Report Type: Spontaneous
  Country: RU (occurrence: RU)
  Receive Date: 20160517
  Receipt Date: 20160517
  Transmission Date: 20160815
  Serious: Yes (Hospitalization)
  Sender: FDA-Public Use
  Company Number: RU-JNJFOC-20160508943

PATIENT
  Age: 46 Year
  Sex: Female

DRUGS (7)
  1. PACLITAXEL. [Suspect]
     Active Substance: PACLITAXEL
     Indication: METASTASES TO LIVER
     Route: 065
  2. DOXORUBICIN HYDROCHLORIDE. [Suspect]
     Active Substance: DOXORUBICIN HYDROCHLORIDE
     Indication: INVASIVE DUCTAL BREAST CARCINOMA
     Dosage: 6 COURSES; TOTAL DOSE OF 620 MG
     Route: 065
     Dates: start: 20121108, end: 201302
  3. DOXORUBICIN HYDROCHLORIDE. [Suspect]
     Active Substance: DOXORUBICIN HYDROCHLORIDE
     Indication: INVASIVE DUCTAL BREAST CARCINOMA
     Dosage: (2 COURSES: 280 MG)
     Route: 065
     Dates: start: 201402, end: 201403
  4. DOXORUBICIN HYDROCHLORIDE. [Suspect]
     Active Substance: DOXORUBICIN HYDROCHLORIDE
     Indication: HER-2 POSITIVE BREAST CANCER
     Dosage: (2 COURSES: 280 MG)
     Route: 065
     Dates: start: 201402, end: 201403
  5. TRASTUZUMAB [Suspect]
     Active Substance: TRASTUZUMAB
     Indication: METASTASES TO LIVER
     Route: 065
  6. TRASTUZUMAB [Suspect]
     Active Substance: TRASTUZUMAB
     Indication: METASTASES TO LIVER
     Route: 065
     Dates: start: 20130514, end: 20140109
  7. DOXORUBICIN HYDROCHLORIDE. [Suspect]
     Active Substance: DOXORUBICIN HYDROCHLORIDE
     Indication: HER-2 POSITIVE BREAST CANCER
     Dosage: 6 COURSES; TOTAL DOSE OF 620 MG
     Route: 065
     Dates: start: 20121108, end: 201302

REACTIONS (5)
  - Cardiomyopathy [Not Recovered/Not Resolved]
  - Pericardial effusion [Unknown]
  - Cardiac failure chronic [Not Recovered/Not Resolved]
  - Hydrothorax [Unknown]
  - Arrhythmia [Unknown]
